FAERS Safety Report 23314463 (Version 7)
Quarter: 2025Q4

REPORT INFORMATION
  Report Type: Report from Study
  Country: CA (occurrence: CA)
  Receive Date: 20231219
  Receipt Date: 20251208
  Transmission Date: 20260118
  Serious: Yes (Hospitalization)
  Sender: RIGEL PHARMACEUTICALS
  Company Number: CA-RIGEL PHARMACEUTICALS, INC.-2023FOS001341

PATIENT
  Sex: Female

DRUGS (5)
  1. FOSTAMATINIB DISODIUM [Suspect]
     Active Substance: FOSTAMATINIB DISODIUM
     Indication: Immune thrombocytopenia
     Dosage: 100 MG EVERY OTHER DAY (EVERY 2 DAYS)
     Route: 048
     Dates: start: 20220916
  2. FOSTAMATINIB DISODIUM [Suspect]
     Active Substance: FOSTAMATINIB DISODIUM
     Dosage: 100 MG BID (EVERY 12 HOURS)
     Route: 048
     Dates: start: 20220916
  3. FOSTAMATINIB DISODIUM [Suspect]
     Active Substance: FOSTAMATINIB DISODIUM
     Dosage: 100 MG, 2/DAYS
     Route: 048
     Dates: start: 20230916
  4. FOSTAMATINIB DISODIUM [Suspect]
     Active Substance: FOSTAMATINIB DISODIUM
     Dosage: 100 MG EVERY OTHER DAY
     Route: 048
     Dates: start: 2024, end: 2025
  5. FOSTAMATINIB DISODIUM [Suspect]
     Active Substance: FOSTAMATINIB DISODIUM
     Dosage: 100 MG, QD
     Route: 048
     Dates: end: 2024

REACTIONS (5)
  - Hospitalisation [Unknown]
  - Platelet count decreased [Recovered/Resolved]
  - Adverse drug reaction [Unknown]
  - Unevaluable event [Not Recovered/Not Resolved]
  - Product use issue [Unknown]
